FAERS Safety Report 4797284-7 (Version None)
Quarter: 2005Q4

REPORT INFORMATION
  Report Type: 
  Country: None (occurrence: None)
  Receive Date: 20051013
  Receipt Date: 20050607
  Transmission Date: 20060501
  Serious: Yes (Congenital Anomaly, Other)
  Sender: FDA-Public Use
  Company Number: GB-GLAXOSMITHKLINE-B0383910A

PATIENT
  Weight: 1.8 kg

DRUGS (1)
  1. LAMOTRIGINE [Suspect]
     Route: 050

REACTIONS (3)
  - CONGENITAL ANOMALY [None]
  - CONGENITAL CENTRAL NERVOUS SYSTEM ANOMALY [None]
  - MATERNAL DRUGS AFFECTING FOETUS [None]
